FAERS Safety Report 5704540-4 (Version None)
Quarter: 2008Q2

REPORT INFORMATION
  Report Type: 
  Country: None (occurrence: None)
  Receive Date: 20080414
  Receipt Date: 20080331
  Transmission Date: 20081010
  Serious: Yes (Other)
  Sender: FDA-Public Use
  Company Number: GB-ROCHE-551874

PATIENT
  Sex: Female
  Weight: 145 kg

DRUGS (2)
  1. ORLISTAT [Suspect]
     Indication: OBESITY
     Dosage: IT WAS REPORTED THAT THE PATIENT WAS STILL TAKING OLRISTAT BUT NOT REGULARLY.
     Route: 048
     Dates: start: 20071104
  2. MORPHINE [Concomitant]

REACTIONS (2)
  - DEPRESSION [None]
  - SELF INJURIOUS BEHAVIOUR [None]
